FAERS Safety Report 6757806-3 (Version None)
Quarter: 2010Q2

REPORT INFORMATION
  Report Type: 
  Country: None (occurrence: None)
  Receive Date: 20100607
  Receipt Date: 20100524
  Transmission Date: 20101027
  Serious: Yes (Death)
  Sender: FDA-Public Use
  Company Number: PHFR2010GB00658

PATIENT
  Sex: Male

DRUGS (2)
  1. CLOZARIL [Suspect]
     Indication: SCHIZOPHRENIA
     Dosage: UNK
     Route: 048
     Dates: start: 20070814
  2. CLOZARIL [Suspect]
     Dosage: UNK
     Dates: start: 20100508

REACTIONS (3)
  - MULTIPLE DRUG OVERDOSE [None]
  - OVERDOSE [None]
  - SELF-MEDICATION [None]
